FAERS Safety Report 13353223 (Version 1)
Quarter: 2017Q1

REPORT INFORMATION
  Report Type: Spontaneous
  Country: PK (occurrence: PK)
  Receive Date: 20170321
  Receipt Date: 20170321
  Transmission Date: 20170429
  Serious: Yes (Death)
  Sender: FDA-Public Use
  Company Number: PK-ROCHE-1909024

PATIENT
  Age: 65 Year
  Sex: Male

DRUGS (1)
  1. XELODA [Suspect]
     Active Substance: CAPECITABINE
     Indication: GASTROINTESTINAL CARCINOMA
     Route: 048

REACTIONS (1)
  - Death [Fatal]
